FAERS Safety Report 12140286 (Version 2)
Quarter: 2016Q1

REPORT INFORMATION
  Report Type: Spontaneous
  Country: US (occurrence: US)
  Receive Date: 20160303
  Receipt Date: 20160323
  Transmission Date: 20160526
  Serious: No
  Sender: FDA-Public Use
  Company Number: US-PFIZER INC-2016123210

PATIENT
  Age: 56 Year
  Sex: Female

DRUGS (2)
  1. LANTUS [Concomitant]
     Active Substance: INSULIN GLARGINE
     Dosage: UNK(50 UNITS AT NIGHT AND 30 UNITS IN MORNING)
  2. LYRICA [Suspect]
     Active Substance: PREGABALIN
     Indication: DIABETIC NEUROPATHY
     Dosage: 300 MG, 2X/DAY

REACTIONS (6)
  - Pain in extremity [Unknown]
  - Feeling abnormal [Unknown]
  - Feeding disorder [Unknown]
  - Weight decreased [Unknown]
  - Insomnia [Unknown]
  - Blood glucose abnormal [Unknown]
